FAERS Safety Report 20036317 (Version 1)
Quarter: 2021Q4

REPORT INFORMATION
  Report Type: Spontaneous
  Country: NO (occurrence: NO)
  Receive Date: 20211105
  Receipt Date: 20211105
  Transmission Date: 20220303
  Serious: Yes (Hospitalization, Other)
  Sender: FDA-Public Use
  Company Number: None

PATIENT
  Age: 57 Year
  Sex: Female
  Weight: 93 kg

DRUGS (4)
  1. JANUVIA [Suspect]
     Active Substance: SITAGLIPTIN PHOSPHATE
     Indication: Diabetes mellitus
     Dosage: UNK; TABLET, A10BH01 - SITAGLIPTIN
     Route: 048
     Dates: start: 20210312, end: 20210326
  2. INSULIN HUMAN [Concomitant]
     Active Substance: INSULIN HUMAN
     Indication: Type 2 diabetes mellitus
     Dosage: 20 ENHETER 2 GANGER DAGLIG, A10AC01 - INSULIN (HUMAN)
     Dates: start: 20210311
  3. LEVOTHYROXINE SODIUM [Concomitant]
     Active Substance: LEVOTHYROXINE SODIUM
     Indication: Hypothyroidism
     Dosage: 125 MG DAGLIG, S??? I TILLEGG 25 MG X 3 EXTRA PR WEEK. H03AA01 - LEVOTYROKSINNATRIUM
     Dates: start: 1991
  4. ATACAND [Concomitant]
     Active Substance: CANDESARTAN CILEXETIL
     Indication: Hypertension
     Dosage: 8 MG DAILY WAS INCREASED TO 16 MG DAILY, C09CA06 - KANDESARTAN
     Dates: start: 2019

REACTIONS (7)
  - Rash [Unknown]
  - Oedema [Recovering/Resolving]
  - Myalgia [Unknown]
  - Pyrexia [Unknown]
  - Nausea [Unknown]
  - Vision blurred [Unknown]
  - Chills [Unknown]

NARRATIVE: CASE EVENT DATE: 20210323
